FAERS Safety Report 12646061 (Version 2)
Quarter: 2016Q3

REPORT INFORMATION
  Report Type: Spontaneous
  Country: PT (occurrence: PT)
  Receive Date: 20160811
  Receipt Date: 20160818
  Transmission Date: 20161109
  Serious: Yes (Hospitalization, Other)
  Sender: FDA-Public Use
  Company Number: PT-GILEAD-2016-0227385

PATIENT
  Age: 48 Year
  Sex: Male

DRUGS (1)
  1. ZYDELIG [Suspect]
     Active Substance: IDELALISIB
     Indication: B-CELL LYMPHOMA
     Dosage: 150 MG, UNK
     Route: 065
     Dates: start: 201605, end: 201607

REACTIONS (6)
  - Haemoglobin decreased [Unknown]
  - Malaise [Unknown]
  - Neutrophil count decreased [Unknown]
  - Infection [Unknown]
  - Renal failure [Unknown]
  - Pancytopenia [Unknown]
